FAERS Safety Report 6050499-2 (Version None)
Quarter: 2009Q1

REPORT INFORMATION
  Report Type: 
  Country: None (occurrence: None)
  Receive Date: 20090126
  Receipt Date: 20090114
  Transmission Date: 20090719
  Serious: Yes (Other)
  Sender: FDA-Public Use
  Company Number: PHHY2009NL01414

PATIENT
  Sex: Female

DRUGS (2)
  1. FEMARA [Suspect]
     Indication: BREAST CANCER
     Dosage: 2.5 MG, SINCE ONE AND HALF MONTHS
  2. LAPATINIB [Concomitant]

REACTIONS (3)
  - ALOPECIA [None]
  - MASTECTOMY [None]
  - OOPHORECTOMY [None]
